FAERS Safety Report 5502566-7 (Version None)
Quarter: 2007Q4

REPORT INFORMATION
  Report Type: 
  Country: None (occurrence: None)
  Receive Date: 20071031
  Receipt Date: 20071023
  Transmission Date: 20080405
  Serious: Yes (Other)
  Sender: FDA-Public Use
  Company Number: PHBS2007IE16544

PATIENT
  Sex: Female

DRUGS (4)
  1. FEMARA [Suspect]
     Indication: BREAST CANCER
     Dosage: UNK, UNK
     Route: 065
     Dates: start: 20070827, end: 20071001
  2. PERINDOPRIL ERBUMINE [Concomitant]
     Indication: HYPERTENSION
     Route: 048
     Dates: start: 20060424
  3. COVERSYL PLUS [Concomitant]
     Indication: HYPERTENSION
     Route: 065
     Dates: start: 20071004
  4. ELICON [Concomitant]
     Route: 061

REACTIONS (7)
  - CIRCULATORY COLLAPSE [None]
  - DIZZINESS [None]
  - DRUG DISPENSING ERROR [None]
  - FATIGUE [None]
  - HOT FLUSH [None]
  - MENOPAUSAL SYMPTOMS [None]
  - RASH [None]
